FAERS Safety Report 13041223 (Version 1)
Quarter: 2016Q4

REPORT INFORMATION
  Report Type: Spontaneous
  Country: US (occurrence: US)
  Receive Date: 20161219
  Receipt Date: 20161219
  Transmission Date: 20170207
  Serious: No
  Sender: FDA-Public Use
  Company Number: US-ROCHE-1164031

PATIENT
  Age: 57 Year
  Sex: Male

DRUGS (1)
  1. VEMURAFENIB [Suspect]
     Active Substance: VEMURAFENIB
     Indication: MALIGNANT MELANOMA
     Route: 065

REACTIONS (6)
  - Ill-defined disorder [Unknown]
  - Seborrhoeic keratosis [Unknown]
  - Acantholysis [Unknown]
  - Papilloma [Unknown]
  - Dysplastic naevus [Unknown]
  - Hyperkeratosis [Unknown]
